FAERS Safety Report 25468630 (Version 4)
Quarter: 2025Q4

REPORT INFORMATION
  Report Type: Spontaneous
  Country: CA (occurrence: CA)
  Receive Date: 20250623
  Receipt Date: 20251211
  Transmission Date: 20260117
  Serious: Yes (Other)
  Sender: PFIZER
  Company Number: CA-PFIZER INC-PV202500074072

PATIENT
  Sex: Male

DRUGS (2)
  1. ENCORAFENIB [Suspect]
     Active Substance: ENCORAFENIB
     Indication: Malignant melanoma
     Dosage: UNK
     Dates: start: 202501
  2. BINIMETINIB [Suspect]
     Active Substance: BINIMETINIB
     Indication: Malignant melanoma
     Dosage: UNK
     Dates: start: 202501

REACTIONS (2)
  - Serous retinopathy [Recovering/Resolving]
  - Vision blurred [Unknown]

NARRATIVE: CASE EVENT DATE: 20250601
